FAERS Safety Report 5340741-5 (Version None)
Quarter: 2007Q2

REPORT INFORMATION
  Report Type: 
  Country: None (occurrence: None)
  Receive Date: 20070405
  Receipt Date: 20070104
  Transmission Date: 20071010
  Serious: No
  Sender: FDA-Public Use
  Company Number: US200701000939

PATIENT
  Sex: Female

DRUGS (7)
  1. CYMBALTA [Suspect]
     Indication: BIPOLAR DISORDER
     Dosage: 30 MG
     Dates: start: 20061218
  2. PROZAC [Suspect]
     Indication: BIPOLAR DISORDER
     Dosage: 20 MG
  3. BUSPAR /AUS/(BUSPIRONE HYDROCHLORIDE) [Concomitant]
  4. NEURONTIN [Concomitant]
  5. LAMICTAL [Concomitant]
  6. OMEGA 3(FISH OIL) [Concomitant]
  7. MULTIVITAMINS(ASCORBIC ACID, ERGOCALCIFEROL, FOLIC ACID, NICOTINAMIDE, [Concomitant]

REACTIONS (12)
  - ASTHENIA [None]
  - CHOKING [None]
  - CRYING [None]
  - DECREASED APPETITE [None]
  - DEPRESSION [None]
  - EAR DISCOMFORT [None]
  - FEELING ABNORMAL [None]
  - INDIFFERENCE [None]
  - INSOMNIA [None]
  - NAUSEA [None]
  - PRURITUS [None]
  - TREMOR [None]
